FAERS Safety Report 21962306 (Version 3)
Quarter: 2023Q1

REPORT INFORMATION
  Report Type: Spontaneous
  Country: US (occurrence: US)
  Receive Date: 20230207
  Receipt Date: 20230315
  Transmission Date: 20230418
  Serious: No
  Sender: FDA-Public Use
  Company Number: US-PFIZER INC-202300002202

PATIENT
  Age: 70 Year
  Sex: Female
  Weight: 128.37 kg

DRUGS (2)
  1. ESTRADIOL [Suspect]
     Active Substance: ESTRADIOL
     Indication: Hysterectomy
     Dosage: 0.5 MG, 1X/DAY
     Route: 048
  2. ESTRADIOL [Suspect]
     Active Substance: ESTRADIOL
     Indication: Hormone replacement therapy

REACTIONS (8)
  - Drug ineffective [Unknown]
  - Malaise [Unknown]
  - Mood swings [Unknown]
  - Malaise [Unknown]
  - Fatigue [Unknown]
  - Feeling abnormal [Unknown]
  - Vulvovaginal dryness [Unknown]
  - Pelvic organ prolapse [Unknown]
